FAERS Safety Report 10740578 (Version 1)
Quarter: 2015Q1

REPORT INFORMATION
  Report Type: Spontaneous
  Country: ES (occurrence: ES)
  Receive Date: 20150127
  Receipt Date: 20150127
  Transmission Date: 20150721
  Serious: Yes (Other)
  Sender: FDA-Public Use
  Company Number: ES-JNJFOC-20150113515

PATIENT
  Age: 70 Year
  Sex: Male

DRUGS (7)
  1. TRIPTIZOL [Concomitant]
     Indication: SCIATICA
     Route: 048
  2. AMLODIPINE\VALSARTAN [Concomitant]
     Active Substance: AMLODIPINE\VALSARTAN
     Indication: HYPERTENSION
     Route: 048
  3. METFORMIN [Concomitant]
     Active Substance: METFORMIN HYDROCHLORIDE
     Indication: TYPE 2 DIABETES MELLITUS
     Route: 048
  4. LYRICA [Concomitant]
     Active Substance: PREGABALIN
     Indication: SCIATICA
     Route: 048
  5. ZALDIAR [Suspect]
     Active Substance: ACETAMINOPHEN\TRAMADOL HYDROCHLORIDE
     Indication: SCIATICA
     Dosage: CUMULATIVE DOSE FOR FIRST REACTION 60 DOSES
     Route: 048
     Dates: start: 20141202, end: 20141221
  6. DUTASTERIDE /TAMSULOSIN [Concomitant]
     Indication: PRODUCT USED FOR UNKNOWN INDICATION
     Route: 048
  7. INZITAN [Concomitant]
     Active Substance: CYANOCOBALAMIN\DEXAMETHASONE\LIDOCAINE HYDROCHLORIDE\THIAMINE HYDROCHLORIDE
     Indication: SCIATICA
     Route: 030

REACTIONS (2)
  - Subileus [Recovered/Resolved]
  - Constipation [Recovered/Resolved]

NARRATIVE: CASE EVENT DATE: 20141202
